FAERS Safety Report 15243286 (Version 1)
Quarter: 2018Q3

REPORT INFORMATION
  Report Type: Spontaneous
  Country: US (occurrence: US)
  Receive Date: 20180806
  Receipt Date: 20180806
  Transmission Date: 20181010
  Serious: No
  Sender: FDA-Public Use
  Company Number: US-MYLANLABS-2018M1052327

PATIENT

DRUGS (2)
  1. DENAVIR [Suspect]
     Active Substance: PENCICLOVIR
     Indication: ORAL HERPES
     Dosage: 5 G, UNK
     Route: 003
  2. DENAVIR [Suspect]
     Active Substance: PENCICLOVIR
     Route: 003

REACTIONS (2)
  - Drug ineffective [Recovering/Resolving]
  - Product colour issue [Unknown]
